FAERS Safety Report 7205365-3 (Version None)
Quarter: 2010Q4

REPORT INFORMATION
  Report Type: 
  Country: None (occurrence: None)
  Receive Date: 20101231
  Receipt Date: 20101222
  Transmission Date: 20110411
  Serious: Yes (Other)
  Sender: FDA-Public Use
  Company Number: BR-US-EMD SERONO, INC.-7033308

PATIENT
  Sex: Female

DRUGS (1)
  1. REBIF [Suspect]
     Indication: SECONDARY PROGRESSIVE MULTIPLE SCLEROSIS

REACTIONS (5)
  - ANKLE FRACTURE [None]
  - BALANCE DISORDER [None]
  - FALL [None]
  - GAIT DISTURBANCE [None]
  - INJECTION SITE ERYTHEMA [None]
